FAERS Safety Report 8608829-0 (Version None)
Quarter: 2012Q3

REPORT INFORMATION
  Report Type: 
  Country: None (occurrence: None)
  Receive Date: 20120821
  Receipt Date: 20120807
  Transmission Date: 20120928
  Serious: Yes (Hospitalization)
  Sender: FDA-Public Use
  Company Number: DE-UCBSA-063498

PATIENT
  Sex: Female

DRUGS (8)
  1. CIPROFLOXACIN [Concomitant]
     Indication: BRONCHITIS
     Dates: start: 20110401, end: 20110407
  2. TRYASOL [Concomitant]
     Indication: BRONCHITIS
     Dosage: SOLUTION/DROPS
     Dates: start: 20110401, end: 20110407
  3. ACETYLCYSTEINE [Concomitant]
     Indication: BRONCHITIS
     Dates: start: 20110401, end: 20110407
  4. ARAVA [Concomitant]
     Indication: RHEUMATOID ARTHRITIS
     Dates: start: 20100823, end: 20101001
  5. IBUPROFEN [Concomitant]
     Indication: RHEUMATOID ARTHRITIS
  6. PREDNISOLONE [Concomitant]
     Indication: RHEUMATOID ARTHRITIS
     Dates: start: 20110113
  7. CIMZIA [Suspect]
     Indication: RHEUMATOID ARTHRITIS
     Route: 058
     Dates: start: 20101120, end: 20110702
  8. ARAVA [Concomitant]
     Dates: start: 20110704

REACTIONS (2)
  - JOINT EFFUSION [None]
  - HERPES ZOSTER [None]
